FAERS Safety Report 17242125 (Version 1)
Quarter: 2020Q1

REPORT INFORMATION
  Report Type: Spontaneous
  Country: FR (occurrence: FR)
  Receive Date: 20200107
  Receipt Date: 20200107
  Transmission Date: 20200409
  Serious: Yes (Hospitalization)
  Sender: FDA-Public Use
  Company Number: FR-ZYDUS-046161

PATIENT
  Age: 62 Year
  Sex: Male
  Weight: 97 kg

DRUGS (6)
  1. FUSIDIC ACID [Interacting]
     Active Substance: FUSIDIC ACID
     Indication: DEVICE RELATED INFECTION
     Route: 048
     Dates: start: 20191017, end: 20191205
  2. ATORVASTATIN [Suspect]
     Active Substance: ATORVASTATIN
     Indication: HYPERCHOLESTEROLAEMIA
     Route: 048
     Dates: start: 2017, end: 20191205
  3. PANTOPRAZOLE [Concomitant]
     Active Substance: PANTOPRAZOLE
     Indication: PRODUCT USED FOR UNKNOWN INDICATION
     Route: 048
     Dates: start: 2017
  4. LEVOFLOXACIN ARROW [Concomitant]
     Active Substance: LEVOFLOXACIN
     Indication: DEVICE RELATED INFECTION
     Route: 048
     Dates: start: 20190927, end: 20191005
  5. ACETYLSALICYLIC ACID [Concomitant]
     Active Substance: ASPIRIN
     Indication: PRODUCT USED FOR UNKNOWN INDICATION
     Route: 048
  6. PAROXETINE/PAROXETINE HYDROCHLORIDE/PAROXETINE MESILATE [Concomitant]
     Active Substance: PAROXETINE
     Indication: PRODUCT USED FOR UNKNOWN INDICATION
     Route: 048
     Dates: start: 2017

REACTIONS (4)
  - Product prescribing error [Recovered/Resolved]
  - Product dispensing error [Recovered/Resolved]
  - Rhabdomyolysis [Recovering/Resolving]
  - Hepatocellular injury [Recovering/Resolving]

NARRATIVE: CASE EVENT DATE: 20191017
